FAERS Safety Report 6744492-1 (Version None)
Quarter: 2010Q2

REPORT INFORMATION
  Report Type: 
  Country: None (occurrence: None)
  Receive Date: 20100527
  Receipt Date: 20100517
  Transmission Date: 20101027
  Serious: Yes (Other)
  Sender: FDA-Public Use
  Company Number: US-PFIZER INC-2004229438US

PATIENT
  Sex: Female
  Weight: 61.22 kg

DRUGS (3)
  1. XALATAN [Suspect]
     Indication: GLAUCOMA
     Dosage: 1 DROP IN THE LEFT EYE DAILY
     Route: 047
  2. ESTROGENS CONJUGATED [Concomitant]
     Route: 048
  3. THERMOTABS [Concomitant]
     Route: 048
     Dates: start: 20040101

REACTIONS (4)
  - ANXIETY [None]
  - CATARACT [None]
  - DRY MOUTH [None]
  - MEDICATION ERROR [None]
